FAERS Safety Report 6104977-8 (Version None)
Quarter: 2009Q1

REPORT INFORMATION
  Report Type: 
  Country: None (occurrence: None)
  Receive Date: 20090304
  Receipt Date: 20090304
  Transmission Date: 20090719
  Serious: No
  Sender: FDA-Public Use
  Company Number: None

PATIENT
  Sex: Female
  Weight: 99.7 kg

DRUGS (2)
  1. DOXORUBICIN HCL [Suspect]
     Dosage: 128.4 MG
     Dates: end: 20081001
  2. CYCLOPHOSPHAMIDE [Suspect]
     Dosage: 1284 MG
     Dates: end: 20081001

REACTIONS (1)
  - MULTIPLE GATED ACQUISITION SCAN ABNORMAL [None]
